FAERS Safety Report 16375228 (Version 1)
Quarter: 2019Q2

REPORT INFORMATION
  Report Type: Spontaneous
  Country: US (occurrence: US)
  Receive Date: 20190531
  Receipt Date: 20190531
  Transmission Date: 20190711
  Serious: No
  Sender: FDA-Public Use
  Company Number: US-B.I. PHARMACEUTICALS,INC./RIDGEFIELD-2019-BI-023170

PATIENT
  Sex: Female
  Weight: 79.38 kg

DRUGS (2)
  1. FLECTOR [Concomitant]
     Active Substance: DICLOFENAC EPOLAMINE
     Indication: INTERVERTEBRAL DISC DEGENERATION
     Route: 062
     Dates: start: 2013, end: 201802
  2. MOBIC [Suspect]
     Active Substance: MELOXICAM
     Indication: INTERVERTEBRAL DISC DEGENERATION
     Route: 065

REACTIONS (1)
  - Therapeutic product effect incomplete [Unknown]
